FAERS Safety Report 10079703 (Version 1)
Quarter: 2014Q2

REPORT INFORMATION
  Report Type: Spontaneous
  Country: US (occurrence: None)
  Receive Date: 20140414
  Receipt Date: 20140414
  Transmission Date: 20141212
  Serious: Yes (Life-Threatening)
  Sender: FDA-Public Use
  Company Number: None

PATIENT
  Age: 43 Year
  Sex: Female
  Weight: 72.58 kg

DRUGS (1)
  1. SINGULAR [Suspect]
     Indication: ASTHMA
     Route: 048
     Dates: start: 20140409, end: 20140413

REACTIONS (2)
  - Crying [None]
  - Suicidal ideation [None]
